FAERS Safety Report 6804109-4 (Version None)
Quarter: 2010Q2

REPORT INFORMATION
  Report Type: 
  Country: None (occurrence: None)
  Receive Date: 20100628
  Receipt Date: 20070510
  Transmission Date: 20101027
  Serious: No
  Sender: FDA-Public Use
  Company Number: US-PFIZER INC-2006032030

PATIENT
  Age: 90 Year
  Sex: Female

DRUGS (1)
  1. XALATAN [Suspect]
     Indication: GLAUCOMA
     Route: 061
     Dates: start: 20010410

REACTIONS (6)
  - BLEPHARITIS [None]
  - DRY EYE [None]
  - EYE DISCHARGE [None]
  - EYE PAIN [None]
  - FOREIGN BODY SENSATION IN EYES [None]
  - HEARING IMPAIRED [None]
